FAERS Safety Report 24531411 (Version 1)
Quarter: 2024Q4

REPORT INFORMATION
  Report Type: Report from Study
  Country: US (occurrence: US)
  Receive Date: 20241022
  Receipt Date: 20241022
  Transmission Date: 20250114
  Serious: No
  Sender: ROCHE
  Company Number: US-ROCHE-3258189

PATIENT
  Age: 69 Year
  Sex: Male

DRUGS (35)
  1. PULMOZYME [Suspect]
     Active Substance: DORNASE ALFA
     Indication: Respiratory failure
     Route: 045
  2. PULMOZYME [Suspect]
     Active Substance: DORNASE ALFA
     Indication: Respiratory disorder
  3. PULMOZYME [Suspect]
     Active Substance: DORNASE ALFA
     Indication: Lung transplant
  4. PULMOZYME [Suspect]
     Active Substance: DORNASE ALFA
     Indication: Complications of transplanted lung
  5. PULMOZYME [Suspect]
     Active Substance: DORNASE ALFA
     Indication: Tracheostomy
  6. PULMOZYME [Suspect]
     Active Substance: DORNASE ALFA
     Indication: Acute respiratory failure
  7. PULMOZYME [Suspect]
     Active Substance: DORNASE ALFA
     Indication: Hypercapnia
  8. AZITHROMYCIN [Concomitant]
     Active Substance: AZITHROMYCIN
  9. COLISTIMETHATE [Concomitant]
     Active Substance: COLISTIMETHATE SODIUM
  10. SULFAMETHOXAZOLE AND TRIMETHOPRIM [Concomitant]
     Active Substance: SULFAMETHOXAZOLE\TRIMETHOPRIM
     Dosage: 800-160 MG PER TABLET
  11. TOBRAMYCIN [Concomitant]
     Active Substance: TOBRAMYCIN\TOBRAMYCIN SULFATE
     Dosage: 300MG/5ML
  12. VALACYCLOVIR [Concomitant]
     Active Substance: VALACYCLOVIR HYDROCHLORIDE
  13. MYCOPHENOLIC ACID [Concomitant]
     Active Substance: MYCOPHENOLIC ACID
     Route: 048
  14. PREDNISONE [Concomitant]
     Active Substance: PREDNISONE
  15. SIROLIMUS [Concomitant]
     Active Substance: SIROLIMUS
     Route: 048
  16. TACROLIMUS [Concomitant]
     Active Substance: TACROLIMUS
     Route: 048
  17. ACETAMINOPHEN [Concomitant]
     Active Substance: ACETAMINOPHEN
  18. ALBUTEROL [Concomitant]
     Active Substance: ALBUTEROL
     Dosage: 2.5 MG/3ML
  19. BIOTIN [Concomitant]
     Active Substance: BIOTIN
  20. BUDESONIDE [Concomitant]
     Active Substance: BUDESONIDE
     Dosage: 0.5 MG/2ML
  21. BUMETANIDE [Concomitant]
     Active Substance: BUMETANIDE
  22. MINERALS\VITAMINS [Concomitant]
     Active Substance: MINERALS\VITAMINS
  23. FLUTICASONE PROPIONATE [Concomitant]
     Active Substance: FLUTICASONE PROPIONATE
     Dosage: 50 MCG
  24. GABAPENTIN [Concomitant]
     Active Substance: GABAPENTIN
  25. LORAZEPAM [Concomitant]
     Active Substance: LORAZEPAM
  26. METOPROLOL SUCCINATE [Concomitant]
     Active Substance: METOPROLOL SUCCINATE
     Route: 048
  27. MONTELUKAST [Concomitant]
     Active Substance: MONTELUKAST
  28. OMEPRAZOLE [Concomitant]
     Active Substance: OMEPRAZOLE
  29. POLYETHYLENE GLYCOL [Concomitant]
     Active Substance: POLYETHYLENE GLYCOL
  30. QUETIAPINE [Concomitant]
     Active Substance: QUETIAPINE
  31. SILDENAFIL [Concomitant]
     Active Substance: SILDENAFIL
  32. SODIUM CHLORIDE [Concomitant]
     Active Substance: SODIUM CHLORIDE
  33. TAMSULOSIN [Concomitant]
     Active Substance: TAMSULOSIN
  34. THIAMINE [Concomitant]
     Active Substance: THIAMINE
  35. COLISTIN [Concomitant]
     Active Substance: COLISTIN

REACTIONS (2)
  - Off label use [Unknown]
  - No adverse event [Unknown]
